FAERS Safety Report 7326204-6 (Version None)
Quarter: 2011Q1

REPORT INFORMATION
  Report Type: 
  Country: None (occurrence: None)
  Receive Date: 20110302
  Receipt Date: 20110218
  Transmission Date: 20110831
  Serious: Yes (Death)
  Sender: FDA-Public Use
  Company Number: A0784436A

PATIENT
  Age: 52 Year
  Sex: Male
  Weight: 104.5 kg

DRUGS (7)
  1. HYDROCHLOROTHIAZIDE [Concomitant]
  2. AVANDIA [Suspect]
     Indication: DIABETES MELLITUS
     Dosage: 8MG TWICE PER DAY
     Route: 048
     Dates: start: 20000901, end: 20070209
  3. CLONIDINE [Concomitant]
  4. LIPITOR [Concomitant]
  5. REGLAN [Concomitant]
  6. GLYBURIDE [Concomitant]
  7. INSULIN [Concomitant]

REACTIONS (1)
  - MYOCARDIAL INFARCTION [None]
